FAERS Safety Report 8615529-X (Version None)
Quarter: 2012Q3

REPORT INFORMATION
  Report Type: 
  Country: None (occurrence: None)
  Receive Date: 20120823
  Receipt Date: 20120821
  Transmission Date: 20120928
  Serious: Yes (Other)
  Sender: FDA-Public Use
  Company Number: CO-PFIZER INC-2012148612

PATIENT
  Age: 69 Year
  Sex: Male

DRUGS (4)
  1. SIMVASTATIN [Concomitant]
     Indication: BLOOD CHOLESTEROL
     Dosage: 40 MG, UNK
  2. LOVAZA [Concomitant]
     Dosage: UNK
  3. LYRICA [Suspect]
     Indication: SPINAL DISORDER
     Dosage: 75 MG FIRST AND THEN AT 150 MG, 2 TABLETS
     Route: 048
     Dates: start: 20110101
  4. SALOFALK ^AVENTIS^ [Concomitant]
     Dosage: 500 MG, UNK

REACTIONS (2)
  - SPINAL PAIN [None]
  - SOMNOLENCE [None]
